FAERS Safety Report 13728092 (Version 2)
Quarter: 2017Q4

REPORT INFORMATION
  Report Type: Spontaneous
  Country: US (occurrence: US)
  Receive Date: 20170707
  Receipt Date: 20171101
  Transmission Date: 20180320
  Serious: No
  Sender: FDA-Public Use
  Company Number: US-PFIZER INC-2017293535

PATIENT
  Age: 76 Year
  Sex: Female
  Weight: 63.5 kg

DRUGS (5)
  1. VENTOLIN [Concomitant]
     Active Substance: ALBUTEROL SULFATE
     Indication: ASTHMA
     Dosage: 90 UG, AS NEEDED
     Dates: end: 201703
  2. BREO ELLIPTA [Concomitant]
     Active Substance: FLUTICASONE FUROATE\VILANTEROL TRIFENATATE
     Indication: ASTHMA
     Dosage: [FLUTICASONE FUROATE 100MCG]/[VILANTEROL TRIFENATATE 25MCG], 1X/DAY
     Dates: start: 201706
  3. PREMARIN [Suspect]
     Active Substance: ESTROGENS, CONJUGATED
     Indication: HYSTERECTOMY
     Dosage: 0.3 MG, 1X/DAY
     Route: 048
     Dates: start: 1976, end: 201704
  4. PREMARIN [Suspect]
     Active Substance: ESTROGENS, CONJUGATED
     Dosage: UNK UNK, 1X/DAY (0.3 ONCE A DAY)
     Dates: start: 20170901
  5. VENTOLIN [Concomitant]
     Active Substance: ALBUTEROL SULFATE
     Indication: BRONCHITIS

REACTIONS (6)
  - Anxiety [Recovered/Resolved]
  - Crying [Unknown]
  - Mood altered [Recovered/Resolved]
  - Body height decreased [Unknown]
  - Vaginal odour [Recovered/Resolved]
  - Feeling abnormal [Unknown]

NARRATIVE: CASE EVENT DATE: 201704
